FAERS Safety Report 9658663 (Version 2)
Quarter: 2013Q4

REPORT INFORMATION
  Report Type: Spontaneous
  Country: US (occurrence: US)
  Receive Date: 20131030
  Receipt Date: 20131030
  Transmission Date: 20140711
  Serious: No
  Sender: FDA-Public Use
  Company Number: US-PURDUE-USA-2011-0076593

PATIENT
  Sex: Male

DRUGS (2)
  1. OXYCONTIN (NDA 22-272) [Suspect]
     Indication: BACK PAIN
     Dosage: 30 MG, Q12H
     Route: 048
     Dates: start: 201104
  2. OXYCONTIN (NDA 22-272) [Suspect]
     Dosage: 20 MG, Q12H

REACTIONS (7)
  - Drug withdrawal syndrome [Unknown]
  - Abdominal pain upper [Unknown]
  - Fatigue [Unknown]
  - Mood swings [Unknown]
  - Headache [Unknown]
  - Drug effect decreased [Unknown]
  - Tremor [Unknown]
